FAERS Safety Report 24158657 (Version 1)
Quarter: 2024Q3

REPORT INFORMATION
  Report Type: Report from Study
  Country: DE (occurrence: None)
  Receive Date: 20240731
  Receipt Date: 20240731
  Transmission Date: 20241017
  Serious: Yes (Hospitalization)
  Sender: ASTRAZENECA
  Company Number: 2024A171652

PATIENT
  Sex: Male

DRUGS (1)
  1. DAPAGLIFLOZIN [Suspect]
     Active Substance: DAPAGLIFLOZIN
     Indication: Hypervolaemia
     Dosage: UNK

REACTIONS (4)
  - Klebsiella test positive [Recovered/Resolved]
  - Urinary tract infection [Recovered/Resolved]
  - Rash pruritic [Unknown]
  - Off label use [Unknown]
